FAERS Safety Report 17893917 (Version 2)
Quarter: 2021Q2

REPORT INFORMATION
  Report Type: Spontaneous
  Country: US (occurrence: US)
  Receive Date: 20200615
  Receipt Date: 20210406
  Transmission Date: 20210717
  Serious: Yes (Death, Other)
  Sender: FDA-Public Use
  Company Number: US-SA-2020SA152059

PATIENT
  Age: 58 Year
  Sex: Male

DRUGS (2)
  1. ZANTAC [Suspect]
     Active Substance: RANITIDINE HYDROCHLORIDE
     Indication: DYSPEPSIA
     Dosage: 150 MG, QD
     Dates: start: 201301, end: 201701
  2. ZANTAC [Suspect]
     Active Substance: RANITIDINE HYDROCHLORIDE
     Indication: ABDOMINAL DISCOMFORT

REACTIONS (4)
  - Lung carcinoma cell type unspecified stage IV [Unknown]
  - Oesophageal carcinoma [Fatal]
  - Disease progression [Fatal]
  - Renal cancer [Unknown]

NARRATIVE: CASE EVENT DATE: 20160901
